FAERS Safety Report 21364712 (Version 3)
Quarter: 2023Q1

REPORT INFORMATION
  Report Type: Spontaneous
  Country: US (occurrence: US)
  Receive Date: 20220922
  Receipt Date: 20230104
  Transmission Date: 20230417
  Serious: No
  Sender: FDA-Public Use
  Company Number: US-ELI_LILLY_AND_COMPANY-US202209009647

PATIENT
  Sex: Male

DRUGS (4)
  1. TALTZ [Suspect]
     Active Substance: IXEKIZUMAB
     Indication: Product used for unknown indication
     Dosage: UNK UNK, UNKNOWN
     Route: 058
     Dates: start: 2018
  2. TALTZ [Suspect]
     Active Substance: IXEKIZUMAB
     Indication: Product used for unknown indication
     Dosage: UNK UNK, UNKNOWN
     Route: 058
     Dates: start: 2018
  3. TALTZ [Suspect]
     Active Substance: IXEKIZUMAB
     Dosage: 80 UNK
     Route: 058
     Dates: start: 2018
  4. TALTZ [Suspect]
     Active Substance: IXEKIZUMAB
     Dosage: 80 UNK
     Route: 058
     Dates: start: 2018

REACTIONS (2)
  - Product dose omission issue [Unknown]
  - Injection site pain [Unknown]
